FAERS Safety Report 10744900 (Version 2)
Quarter: 2015Q2

REPORT INFORMATION
  Report Type: Spontaneous
  Country: DK (occurrence: DK)
  Receive Date: 20150128
  Receipt Date: 20150424
  Transmission Date: 20150821
  Serious: Yes (Death, Life-Threatening, Hospitalization)
  Sender: FDA-Public Use
  Company Number: DK-PFIZER INC-2015037134

PATIENT
  Age: 50 Year
  Sex: Male

DRUGS (18)
  1. ETALPHA [Concomitant]
     Active Substance: ALFACALCIDOL
     Dosage: UNK
  2. HJERTEMAGNYL [Concomitant]
     Active Substance: ASPIRIN\MAGNESIUM OXIDE
     Dosage: UNK
  3. METOPROLOL TARTRATE. [Concomitant]
     Active Substance: METOPROLOL TARTRATE
     Dosage: UNK
  4. LANSOPRAZOLE. [Concomitant]
     Active Substance: LANSOPRAZOLE
     Dosage: UNK
  5. RAMIPRIL. [Concomitant]
     Active Substance: RAMIPRIL
     Dosage: UNK
  6. TEMESTA [Concomitant]
     Active Substance: LORAZEPAM
     Dosage: UNK
  7. SULFAMETHOXAZOLE AND TRIMETHOPRIM [Concomitant]
     Active Substance: SULFAMETHOXAZOLE\TRIMETHOPRIM
     Dosage: UNK
  8. VITAMIN C [Concomitant]
     Active Substance: ASCORBIC ACID
     Dosage: UNK
  9. PINEX [Concomitant]
     Active Substance: ACETAMINOPHEN
     Dosage: UNK
  10. EMPERAL [Concomitant]
     Active Substance: METOCLOPRAMIDE HYDROCHLORIDE
     Dosage: UNK
  11. ARANESP [Concomitant]
     Active Substance: DARBEPOETIN ALFA
     Dosage: UNK
  12. VENOFER [Concomitant]
     Active Substance: IRON SUCROSE
     Dosage: UNK
  13. FRAGMIN [Concomitant]
     Active Substance: DALTEPARIN SODIUM
     Dosage: UNK
  14. PREDNISOLON [Concomitant]
     Active Substance: PREDNISOLONE
     Dosage: UNK
  15. CORDARONE [Suspect]
     Active Substance: AMIODARONE HYDROCHLORIDE
     Indication: ATRIAL FIBRILLATION
     Dosage: 3 DF, 2X/DAY
     Route: 048
     Dates: start: 20140808, end: 20140810
  16. MIMPARA [Concomitant]
     Active Substance: CINACALCET HYDROCHLORIDE
     Dosage: UNK
  17. OSVAREN [Concomitant]
     Active Substance: CALCIUM ACETATE\MAGNESIUM CARBONATE
     Dosage: UNK
  18. GABAPENTIN. [Concomitant]
     Active Substance: GABAPENTIN
     Dosage: UNK

REACTIONS (10)
  - Multi-organ failure [Recovered/Resolved]
  - Circulatory collapse [Recovered/Resolved]
  - Renal impairment [Recovered/Resolved]
  - Cyanosis [Recovered/Resolved]
  - Hypotension [Recovered/Resolved]
  - Bradycardia [Recovered/Resolved]
  - Toxicity to various agents [Fatal]
  - Liver disorder [Recovered/Resolved]
  - Malaise [Recovered/Resolved]
  - Dizziness [Recovered/Resolved]

NARRATIVE: CASE EVENT DATE: 20140810
